FAERS Safety Report 4860649-9 (Version None)
Quarter: 2005Q4

REPORT INFORMATION
  Report Type: 
  Country: None (occurrence: None)
  Receive Date: 20051216
  Receipt Date: 20051130
  Transmission Date: 20060501
  Serious: Yes (Hospitalization)
  Sender: FDA-Public Use
  Company Number: 33388

PATIENT
  Sex: Female

DRUGS (1)
  1. CYCLOGYL [Suspect]
     Dates: start: 20030119

REACTIONS (2)
  - DRUG DISPENSING ERROR [None]
  - MIGRAINE [None]
